FAERS Safety Report 9202810 (Version 1)
Quarter: 2013Q2

REPORT INFORMATION
  Report Type: Spontaneous
  Country: US (occurrence: US)
  Receive Date: 20130401
  Receipt Date: 20130401
  Transmission Date: 20140414
  Serious: Yes (Other)
  Sender: FDA-Public Use
  Company Number: US-AMGEN-USASP2013020812

PATIENT
  Age: 40 Year
  Sex: Female

DRUGS (3)
  1. ENBREL [Suspect]
     Indication: RHEUMATOID ARTHRITIS
     Dosage: UNK
     Dates: start: 20030124
  2. HUMIRA [Concomitant]
     Dosage: UNK
     Dates: start: 201301, end: 201303
  3. PREDNISONE [Concomitant]
     Dosage: UNK
     Route: 048

REACTIONS (6)
  - Retinal detachment [Not Recovered/Not Resolved]
  - Blindness unilateral [Not Recovered/Not Resolved]
  - Cataract [Unknown]
  - Macular hole [Unknown]
  - Eye disorder [Not Recovered/Not Resolved]
  - Condition aggravated [Recovered/Resolved]
